FAERS Safety Report 15410804 (Version 3)
Quarter: 2018Q4

REPORT INFORMATION
  Report Type: Report from Study
  Country: PL (occurrence: PL)
  Receive Date: 20180921
  Receipt Date: 20181102
  Transmission Date: 20190204
  Serious: Yes (Hospitalization, Other)
  Sender: FDA-Public Use
  Company Number: PL-REGENERON PHARMACEUTICALS, INC.-2018-37844

PATIENT

DRUGS (13)
  1. EYLEA [Suspect]
     Active Substance: AFLIBERCEPT
     Dosage: 1 DF, ONCE, OD
     Dates: start: 20161014, end: 20161014
  2. EYLEA [Suspect]
     Active Substance: AFLIBERCEPT
     Dosage: 1 DF, ONCE, OD; TOTAL OF 13 INJECTION PRIOR TO THE EVENT; LAST INJECTION PRIOR TO THE EVENT
     Dates: start: 20180806, end: 20180806
  3. EYLEA [Suspect]
     Active Substance: AFLIBERCEPT
     Dosage: 1 DF, ONCE, OD
     Dates: start: 20170414, end: 20170414
  4. EYLEA [Suspect]
     Active Substance: AFLIBERCEPT
     Dosage: 1 DF, ONCE, OD
     Dates: start: 20171013, end: 20171013
  5. EYLEA [Suspect]
     Active Substance: AFLIBERCEPT
     Dosage: 1 DF, ONCE, OD
     Dates: start: 20171215, end: 20171215
  6. EYLEA [Suspect]
     Active Substance: AFLIBERCEPT
     Dosage: 1 DF, ONCE, OD
     Dates: start: 20180416, end: 20180416
  7. EYLEA [Suspect]
     Active Substance: AFLIBERCEPT
     Indication: NEOVASCULAR AGE-RELATED MACULAR DEGENERATION
     Dosage: 1 DF, ONCE, OD
     Dates: start: 20160906, end: 20160906
  8. EYLEA [Suspect]
     Active Substance: AFLIBERCEPT
     Dosage: 1 DF, ONCE, OD
     Dates: start: 20161209, end: 20161209
  9. EYLEA [Suspect]
     Active Substance: AFLIBERCEPT
     Dosage: 1 DF, ONCE, OD
     Dates: start: 20170616, end: 20170616
  10. EYLEA [Suspect]
     Active Substance: AFLIBERCEPT
     Dosage: 1 DF, ONCE, OD
     Dates: start: 20170811, end: 20170811
  11. EYLEA [Suspect]
     Active Substance: AFLIBERCEPT
     Dosage: 1 DF, ONCE, OD
     Dates: start: 20180213, end: 20180213
  12. EYLEA [Suspect]
     Active Substance: AFLIBERCEPT
     Dosage: 1 DF, ONCE, OD
     Dates: start: 20180611, end: 20180611
  13. EYLEA [Suspect]
     Active Substance: AFLIBERCEPT
     Dosage: 1 DF, ONCE, OD
     Dates: start: 20170210, end: 20170210

REACTIONS (6)
  - Retinal detachment [Not Recovered/Not Resolved]
  - Multiple use of single-use product [Unknown]
  - Blindness [Unknown]
  - Vitreous injury [Not Recovered/Not Resolved]
  - Ocular discomfort [Unknown]
  - Vitritis [Not Recovered/Not Resolved]

NARRATIVE: CASE EVENT DATE: 2018
